FAERS Safety Report 13939102 (Version 3)
Quarter: 2023Q2

REPORT INFORMATION
  Report Type: Spontaneous
  Country: US (occurrence: US)
  Receive Date: 20170906
  Receipt Date: 20230612
  Transmission Date: 20230722
  Serious: Yes (Other)
  Sender: FDA-Public Use
  Company Number: US-BIOGEN-2017BI00454797

PATIENT
  Sex: Female

DRUGS (16)
  1. AVONEX [Suspect]
     Active Substance: INTERFERON BETA-1A
     Indication: Multiple sclerosis
     Route: 050
     Dates: start: 20140818
  2. AVONEX [Suspect]
     Active Substance: INTERFERON BETA-1A
  3. AVONEX [Suspect]
     Active Substance: INTERFERON BETA-1A
  4. AVONEX [Suspect]
     Active Substance: INTERFERON BETA-1A
  5. AVONEX [Suspect]
     Active Substance: INTERFERON BETA-1A
  6. AVONEX [Suspect]
     Active Substance: INTERFERON BETA-1A
  7. AVONEX [Suspect]
     Active Substance: INTERFERON BETA-1A
  8. AVONEX [Suspect]
     Active Substance: INTERFERON BETA-1A
  9. AVONEX [Suspect]
     Active Substance: INTERFERON BETA-1A
  10. AVONEX [Suspect]
     Active Substance: INTERFERON BETA-1A
  11. AVONEX [Suspect]
     Active Substance: INTERFERON BETA-1A
  12. AVONEX [Suspect]
     Active Substance: INTERFERON BETA-1A
  13. AVONEX [Suspect]
     Active Substance: INTERFERON BETA-1A
  14. CALCIUM [Concomitant]
     Active Substance: CALCIUM
     Indication: Product used for unknown indication
     Route: 050
  15. VITAMIN D3 [Concomitant]
     Active Substance: CHOLECALCIFEROL
     Indication: Product used for unknown indication
     Route: 050
  16. VITAMIN B12 [Concomitant]
     Active Substance: CYANOCOBALAMIN
     Indication: Product used for unknown indication
     Route: 050

REACTIONS (2)
  - Cerebral vascular occlusion [Unknown]
  - Drug ineffective [Unknown]
